FAERS Safety Report 25141277 (Version 1)
Quarter: 2025Q1

REPORT INFORMATION
  Report Type: Spontaneous
  Country: DE (occurrence: DE)
  Receive Date: 20250331
  Receipt Date: 20250331
  Transmission Date: 20250409
  Serious: Yes (Other)
  Sender: STRIDES
  Company Number: DE-STRIDES ARCOLAB LIMITED-2025SP003951

PATIENT
  Age: 51 Year
  Sex: Female

DRUGS (2)
  1. ETOPOSIDE [Suspect]
     Active Substance: ETOPOSIDE
     Indication: Neuroendocrine breast tumour
     Route: 065
  2. CARBOPLATIN [Suspect]
     Active Substance: CARBOPLATIN
     Indication: Neuroendocrine breast tumour
     Route: 065

REACTIONS (4)
  - Metastases to liver [Recovering/Resolving]
  - Metastases to bone [Recovering/Resolving]
  - Metastases to spine [Recovering/Resolving]
  - Drug ineffective for unapproved indication [Unknown]
